FAERS Safety Report 15768510 (Version 2)
Quarter: 2019Q1

REPORT INFORMATION
  Report Type: Spontaneous
  Country: CH (occurrence: CH)
  Receive Date: 20181227
  Receipt Date: 20190115
  Transmission Date: 20190417
  Serious: Yes (Other)
  Sender: FDA-Public Use
  Company Number: CH-BAXTER-2018BAX030981

PATIENT
  Sex: Female

DRUGS (3)
  1. IMUREK [Suspect]
     Active Substance: AZATHIOPRINE
     Indication: LUNG DISORDER
     Route: 065
  2. ENDOXAN 1 G. TROCKENSUBSTANZ ZUR INTRAVEN?SEN INFUSION [Suspect]
     Active Substance: CYCLOPHOSPHAMIDE
     Indication: LUNG DISORDER
     Route: 065
  3. PREDNISONE. [Suspect]
     Active Substance: PREDNISONE
     Indication: LUNG DISORDER
     Route: 065

REACTIONS (3)
  - Lung disorder [Unknown]
  - Drug ineffective [Unknown]
  - Disease recurrence [Unknown]
